FAERS Safety Report 9149477 (Version 1)
Quarter: 2013Q1

REPORT INFORMATION
  Report Type: Spontaneous
  Country: US (occurrence: None)
  Receive Date: 20130301
  Receipt Date: 20130301
  Transmission Date: 20140127
  Serious: Yes (Life-Threatening, Hospitalization, Disabling, Other)
  Sender: FDA-Public Use
  Company Number: None

PATIENT
  Age: 54 Year
  Sex: Female
  Weight: 92.53 kg

DRUGS (2)
  1. JANUVIA [Suspect]
     Indication: TYPE 2 DIABETES MELLITUS
     Dosage: 100MG  1 DAILY  BY MOUTH
     Route: 048
     Dates: start: 20080226, end: 20080514
  2. JANUMET [Suspect]
     Indication: BLOOD GLUCOSE INCREASED
     Dosage: 50/500  1 DAILY BY MOUTH
     Route: 048
     Dates: start: 20080515, end: 20110214

REACTIONS (2)
  - Insulin resistance [None]
  - Pancreatic carcinoma [None]
